FAERS Safety Report 5777365-1 (Version None)
Quarter: 2008Q2

REPORT INFORMATION
  Report Type: 
  Country: None (occurrence: None)
  Receive Date: 20080618
  Receipt Date: 20080611
  Transmission Date: 20081010
  Serious: Yes (Hospitalization, Other)
  Sender: FDA-Public Use
  Company Number: PHHY2008BR07638

PATIENT
  Age: 57 Year
  Sex: Female

DRUGS (2)
  1. GLIVEC [Suspect]
     Indication: CHRONIC MYELOID LEUKAEMIA
     Dosage: 400 MG, QD
     Dates: start: 20070201
  2. GLIVEC [Suspect]
     Dosage: 800 MG, QD
     Dates: start: 20071001

REACTIONS (3)
  - DISEASE PROGRESSION [None]
  - PAIN [None]
  - SARCOMA [None]
